FAERS Safety Report 8977008 (Version 1)
Quarter: 2012Q4

REPORT INFORMATION
  Report Type: 
  Country: US (occurrence: US)
  Receive Date: 20121220
  Receipt Date: 20121220
  Transmission Date: 20130627
  Serious: No
  Sender: FDA-Public Use
  Company Number: US-GLAXOSMITHKLINE-A0990985A

PATIENT
  Age: 49 Year
  Sex: Female
  Weight: 118.2 kg

DRUGS (2)
  1. SORIATANE [Suspect]
     Indication: OFF LABEL USE
     Route: 048
     Dates: start: 201201
  2. LEVULAN KERASTICK [Concomitant]

REACTIONS (2)
  - Alopecia [Recovering/Resolving]
  - Off label use [Unknown]
